FAERS Safety Report 22391128 (Version 1)
Quarter: 2023Q2

REPORT INFORMATION
  Report Type: Spontaneous
  Country: US (occurrence: US)
  Receive Date: 20230601
  Receipt Date: 20230601
  Transmission Date: 20230721
  Serious: No
  Sender: FDA-Public Use
  Company Number: US-AUROBINDO-AUR-APL-2022-035196

PATIENT
  Sex: Female

DRUGS (2)
  1. LORATADINE [Suspect]
     Active Substance: LORATADINE
     Indication: Sinus disorder
     Dosage: UNK ( 4 TO 5 TIMES A DAY)
     Route: 065
  2. LORATADINE [Suspect]
     Active Substance: LORATADINE
     Indication: Sinus headache

REACTIONS (1)
  - Intentional overdose [Unknown]
